FAERS Safety Report 4333210-2 (Version None)
Quarter: 2004Q2

REPORT INFORMATION
  Report Type: 
  Country: None (occurrence: None)
  Receive Date: 20040405
  Receipt Date: 20040405
  Transmission Date: 20050107
  Serious: No
  Sender: FDA-Public Use
  Company Number: None

PATIENT
  Age: 40 Year
  Sex: Female
  Weight: 50 kg

DRUGS (1)
  1. ZOLOFT [Suspect]
     Dosage: 30 MG DAILY ORAL
     Route: 048
     Dates: start: 20030101, end: 20040401

REACTIONS (10)
  - ANXIETY [None]
  - BALANCE DISORDER [None]
  - DEPRESSED MOOD [None]
  - DRUG WITHDRAWAL SYNDROME [None]
  - HYPOAESTHESIA [None]
  - NERVOUS SYSTEM DISORDER [None]
  - PAIN [None]
  - RESTLESSNESS [None]
  - SUICIDAL IDEATION [None]
  - VISUAL DISTURBANCE [None]
